FAERS Safety Report 11988923 (Version 1)
Quarter: 2016Q1

REPORT INFORMATION
  Report Type: Spontaneous
  Country: FR (occurrence: FR)
  Receive Date: 20160202
  Receipt Date: 20160202
  Transmission Date: 20160526
  Serious: Yes (Other)
  Sender: FDA-Public Use
  Company Number: FR-EISAI MEDICAL RESEARCH-EC-2015-012184

PATIENT
  Sex: Female
  Weight: 80 kg

DRUGS (1)
  1. INOVELON [Suspect]
     Active Substance: RUFINAMIDE
     Indication: LENNOX-GASTAUT SYNDROME
     Dosage: BETWEEN 400 MG AND 2400 MG (EXACT DOSE NOT AVAILABLE)
     Route: 048
     Dates: start: 20121108

REACTIONS (1)
  - Hypersensitivity [Recovered/Resolved]
